FAERS Safety Report 10868384 (Version 2)
Quarter: 2015Q1

REPORT INFORMATION
  Report Type: Spontaneous
  Country: FI (occurrence: FI)
  Receive Date: 20150225
  Receipt Date: 20150226
  Transmission Date: 20150721
  Serious: Yes (Disabling)
  Sender: FDA-Public Use
  Company Number: FI-PFIZER INC-2015068779

PATIENT
  Age: 71 Year
  Sex: Female

DRUGS (1)
  1. MEDROL [Suspect]
     Active Substance: METHYLPREDNISOLONE
     Indication: ARTHRITIS
     Dosage: 4 MG, 6 TABLETS DAILY
     Route: 048
     Dates: start: 20141229, end: 20150103

REACTIONS (1)
  - Carpal tunnel syndrome [Not Recovered/Not Resolved]
